FAERS Safety Report 8956302 (Version 1)
Quarter: 2012Q4

REPORT INFORMATION
  Report Type: 
  Country: NL (occurrence: NL)
  Receive Date: 20121210
  Receipt Date: 20121210
  Transmission Date: 20130627
  Serious: Yes (Death, Hospitalization)
  Sender: FDA-Public Use
  Company Number: PHHY2012NL113197

PATIENT
  Age: 43 Year
  Sex: Female

DRUGS (2)
  1. MYCOPHENOLATE MOFETIL [Suspect]
     Dosage: 1000 mg, BID
  2. PREDNISONE [Concomitant]

REACTIONS (10)
  - Death [Fatal]
  - Post transplant lymphoproliferative disorder [Unknown]
  - Fatigue [Unknown]
  - Decreased appetite [Unknown]
  - Dehydration [Unknown]
  - Pyrexia [Unknown]
  - Simplex virus test positive [Unknown]
  - Amnesia [Unknown]
  - Bradyphrenia [Unknown]
  - Pharyngitis [Unknown]
